FAERS Safety Report 23655726 (Version 3)
Quarter: 2024Q2

REPORT INFORMATION
  Report Type: Spontaneous
  Country: US (occurrence: US)
  Receive Date: 20240321
  Receipt Date: 20240516
  Transmission Date: 20240716
  Serious: No
  Sender: FDA-Public Use
  Company Number: US-SA-SAC20240319000966

PATIENT
  Age: 56 Year
  Sex: Male

DRUGS (1)
  1. DUPIXENT [Suspect]
     Active Substance: DUPILUMAB
     Indication: Nasal polyps
     Dosage: 300 MG, QOW
     Route: 058
     Dates: start: 20240213

REACTIONS (4)
  - Sinusitis [Recovering/Resolving]
  - Anosmia [Recovering/Resolving]
  - Sleep disorder due to a general medical condition [Recovering/Resolving]
  - Rhinorrhoea [Recovering/Resolving]

NARRATIVE: CASE EVENT DATE: 20240301
